FAERS Safety Report 7863815 (Version 2)
Quarter: 2013Q3

REPORT INFORMATION
  Report Type: Spontaneous
  Country: US (occurrence: US)
  Receive Date: 20110321
  Receipt Date: 20130730
  Transmission Date: 20140515
  Serious: Yes (Hospitalization, Other)
  Sender: FDA-Public Use
  Company Number: US-JNJFOC-20110303887

PATIENT
  Age: 58 Year
  Sex: Female
  Weight: 84.37 kg

DRUGS (25)
  1. REMICADE [Suspect]
     Indication: COLITIS ULCERATIVE
     Route: 042
     Dates: start: 20100621
  2. REMICADE [Suspect]
     Indication: COLITIS ULCERATIVE
     Route: 042
     Dates: start: 20100707
  3. REMICADE [Suspect]
     Indication: COLITIS ULCERATIVE
     Route: 042
     Dates: start: 20100804
  4. REMICADE [Suspect]
     Indication: COLITIS ULCERATIVE
     Route: 042
     Dates: start: 20101216
  5. REMICADE [Suspect]
     Indication: COLITIS ULCERATIVE
     Route: 042
     Dates: start: 20110211
  6. REMICADE [Suspect]
     Indication: COLITIS ULCERATIVE
     Route: 042
     Dates: start: 20110308
  7. REMICADE [Suspect]
     Indication: COLITIS ULCERATIVE
     Route: 042
     Dates: start: 20101006
  8. REMICADE [Suspect]
     Indication: COLITIS ULCERATIVE
     Dosage: APPROXIMATELY THE PATINET RECEIVED 7 INFUSIONS
     Route: 042
     Dates: start: 2010
  9. BENADRYL [Concomitant]
     Indication: PREMEDICATION
     Route: 048
     Dates: start: 20110308
  10. LEVEMIR [Concomitant]
     Indication: DIABETES MELLITUS
     Dosage: 10-20 UNITS
     Route: 065
  11. GLIMEPIRIDE [Concomitant]
     Indication: DIABETES MELLITUS
     Route: 065
  12. MAGNESIUM [Concomitant]
     Route: 065
  13. POTASSIUM [Concomitant]
     Route: 065
  14. LOMOTIL [Concomitant]
     Route: 065
  15. BENTYL [Concomitant]
     Route: 065
  16. PREDNISONE [Concomitant]
     Indication: CROHN^S DISEASE
     Route: 065
  17. PREDNISONE [Concomitant]
     Indication: CROHN^S DISEASE
     Route: 065
  18. GABAPENTIN [Concomitant]
     Dosage: 1200 MG
  19. CRESTOR [Concomitant]
     Route: 065
  20. SYNTHROID [Concomitant]
     Route: 065
  21. TYLENOL [Concomitant]
     Indication: PREMEDICATION
     Route: 048
     Dates: start: 20110308
  22. LUTEIN [Concomitant]
     Route: 065
  23. COENZYME Q10 [Concomitant]
     Route: 065
  24. LACTINEX [Concomitant]
     Dosage: 4 TABLETS
     Route: 065
  25. ECHINACEA [Concomitant]
     Route: 065

REACTIONS (5)
  - Chest pain [Not Recovered/Not Resolved]
  - Gastrointestinal haemorrhage [Not Recovered/Not Resolved]
  - Infusion related reaction [Recovered/Resolved]
  - Local swelling [Recovered/Resolved]
  - Flushing [Recovered/Resolved]
